FAERS Safety Report 7409262-X (Version None)
Quarter: 2011Q2

REPORT INFORMATION
  Report Type: 
  Country: None (occurrence: None)
  Receive Date: 20110412
  Receipt Date: 20110302
  Transmission Date: 20111010
  Serious: Yes (Death, Hospitalization)
  Sender: FDA-Public Use
  Company Number: A0916623A

PATIENT
  Age: 48 Year
  Sex: Male

DRUGS (6)
  1. CIPROFLOXACIN [Concomitant]
     Dosage: 750MG WEEKLY
     Route: 048
  2. CYCLOSPORINE [Concomitant]
     Dosage: 75MG TWICE PER DAY
     Route: 048
  3. EPOGEN [Concomitant]
     Dosage: 40MCG EVERY TWO WEEKS
     Route: 058
  4. LACTULOSE [Concomitant]
     Dosage: 30ML THREE TIMES PER DAY
  5. PROMACTA [Suspect]
     Indication: IDIOPATHIC THROMBOCYTOPENIC PURPURA
     Dosage: 25MG PER DAY
     Route: 048
     Dates: start: 20100806, end: 20100909
  6. ALDACTONE [Concomitant]
     Dosage: 25MG TWICE PER DAY
     Route: 048

REACTIONS (5)
  - LIVER FUNCTION TEST ABNORMAL [None]
  - PNEUMONIA [None]
  - GASTRIC HAEMORRHAGE [None]
  - HEPATIC ENCEPHALOPATHY [None]
  - CHRONIC HEPATIC FAILURE [None]
